FAERS Safety Report 8015906-4 (Version None)
Quarter: 2011Q4

REPORT INFORMATION
  Report Type: 
  Country: None (occurrence: None)
  Receive Date: 20111223
  Receipt Date: 20111218
  Transmission Date: 20120403
  Serious: Yes (Other)
  Sender: FDA-Public Use
  Company Number: IL-007097

PATIENT
  Age: 58 Year
  Sex: Male

DRUGS (1)
  1. MINIRIN [Suspect]
     Indication: DIABETES INSIPIDUS
     Dosage: (0.1 MG BID NASAL)
     Route: 045
     Dates: start: 20111120, end: 20111202

REACTIONS (5)
  - VISION BLURRED [None]
  - MUSCLE SPASMS [None]
  - ACTIVITIES OF DAILY LIVING IMPAIRED [None]
  - HYPERNATRAEMIA [None]
  - HYPONATRAEMIA [None]
